FAERS Safety Report 17434480 (Version 1)
Quarter: 2020Q1

REPORT INFORMATION
  Report Type: Spontaneous
  Country: AR (occurrence: AR)
  Receive Date: 20200219
  Receipt Date: 20200219
  Transmission Date: 20200409
  Serious: Yes (Other)
  Sender: FDA-Public Use
  Company Number: AR-PFIZER INC-2020010998

PATIENT
  Age: 84 Year
  Sex: Female

DRUGS (2)
  1. ALDACTONE HCT [Suspect]
     Active Substance: BUTHIAZIDE\SPIRONOLACTONE
     Dosage: 25 MG, DAILY
  2. LASIX [Concomitant]
     Active Substance: FUROSEMIDE
     Dosage: 40 MG, DAILY

REACTIONS (2)
  - Gait inability [Unknown]
  - Emphysema [Unknown]
